FAERS Safety Report 14269038 (Version 1)
Quarter: 2017Q4

REPORT INFORMATION
  Report Type: Spontaneous
  Country: US (occurrence: US)
  Receive Date: 20171211
  Receipt Date: 20171211
  Transmission Date: 20180321
  Serious: Yes (Other)
  Sender: FDA-Public Use
  Company Number: US-TEVA-2017-US-831575

PATIENT
  Age: 39 Year
  Sex: Female
  Weight: 48 kg

DRUGS (1)
  1. PARAGARD T 380A [Suspect]
     Active Substance: COPPER
     Indication: CONTRACEPTION
     Dates: start: 2008, end: 20171201

REACTIONS (11)
  - Back pain [Not Recovered/Not Resolved]
  - Embedded device [Not Recovered/Not Resolved]
  - Syncope [Recovered/Resolved]
  - Abdominal discomfort [Unknown]
  - Device breakage [Not Recovered/Not Resolved]
  - Procedural pain [Recovered/Resolved]
  - Nausea [Recovered/Resolved]
  - Abdominal pain [Not Recovered/Not Resolved]
  - Device dislocation [Recovered/Resolved]
  - Crying [Recovered/Resolved]
  - Screaming [Recovered/Resolved]

NARRATIVE: CASE EVENT DATE: 20171106
